FAERS Safety Report 23690183 (Version 2)
Quarter: 2025Q2

REPORT INFORMATION
  Report Type: Spontaneous
  Country: PT (occurrence: PT)
  Receive Date: 20240401
  Receipt Date: 20250419
  Transmission Date: 20250717
  Serious: Yes (Hospitalization, Other)
  Sender: AUROBINDO
  Company Number: PT-PIRAMAL PHARMA LIMITED-2024-PPL-000188

PATIENT
  Age: 37 Year
  Sex: Female

DRUGS (5)
  1. ROPIVACAINE [Suspect]
     Active Substance: ROPIVACAINE
     Indication: Epidural analgesia
     Route: 008
  2. ROPIVACAINE [Suspect]
     Active Substance: ROPIVACAINE
     Route: 008
  3. SUFENTANIL [Suspect]
     Active Substance: SUFENTANIL
     Indication: Epidural analgesia
     Route: 008
  4. SUFENTANIL [Suspect]
     Active Substance: SUFENTANIL
     Route: 008
  5. VITAMIN B COMPLEX [Concomitant]
     Active Substance: CYANOCOBALAMIN\DEXPANTHENOL\NIACINAMIDE\PYRIDOXINE HYDROCHLORIDE\RIBOFLAVIN 5^-PHOSPHATE SODIUM\THIA
     Indication: Epidural analgesia
     Route: 065

REACTIONS (8)
  - Hypoaesthesia [Recovering/Resolving]
  - Amyotrophy [Recovered/Resolved]
  - Neuropathy peripheral [Recovered/Resolved]
  - Dysaesthesia [Recovered/Resolved]
  - Gait disturbance [Recovered/Resolved]
  - Neuralgia [Recovered/Resolved]
  - Inadequate analgesia [Recovered/Resolved]
  - Maternal exposure during delivery [Unknown]
